FAERS Safety Report 9217586 (Version 2)
Quarter: 2013Q2

REPORT INFORMATION
  Report Type: Spontaneous
  Country: IT (occurrence: IT)
  Receive Date: 20130408
  Receipt Date: 20130510
  Transmission Date: 20140414
  Serious: Yes (Hospitalization)
  Sender: FDA-Public Use
  Company Number: IT-ROCHE-1211243

PATIENT
  Age: 36 Year
  Sex: Female

DRUGS (4)
  1. VALIUM [Suspect]
     Indication: INTENTIONAL SELF-INJURY
     Route: 048
     Dates: start: 20130326, end: 20130326
  2. VOLTAREN [Suspect]
     Indication: INTENTIONAL SELF-INJURY
     Route: 048
     Dates: start: 20130326, end: 20130326
  3. RILATEN [Suspect]
     Indication: INTENTIONAL SELF-INJURY
     Route: 048
     Dates: start: 20130326, end: 20130326
  4. ZERINOL [Suspect]
     Indication: INTENTIONAL SELF-INJURY
     Dosage: 300 MG + 2 MG TAB
     Route: 048
     Dates: start: 20130326, end: 20130326

REACTIONS (3)
  - Self injurious behaviour [Recovered/Resolved]
  - Sopor [Recovered/Resolved]
  - Drug abuse [Unknown]
